FAERS Safety Report 4625145-2 (Version None)
Quarter: 2005Q2

REPORT INFORMATION
  Report Type: 
  Country: None (occurrence: None)
  Receive Date: 20050325
  Receipt Date: 20050124
  Transmission Date: 20051028
  Serious: No
  Sender: FDA-Public Use
  Company Number: USA050189077

PATIENT
  Age: 85 Year
  Sex: Female

DRUGS (1)
  1. FORTEO [Suspect]
     Indication: OSTEOPOROSIS
     Dosage: 20 UG
     Dates: start: 20041018

REACTIONS (5)
  - CONTUSION [None]
  - DYSPNOEA [None]
  - INFLAMMATION [None]
  - INJECTION SITE HAEMORRHAGE [None]
  - INJECTION SITE RASH [None]
